FAERS Safety Report 16119748 (Version 1)
Quarter: 2019Q1

REPORT INFORMATION
  Report Type: Other
  Country: US (occurrence: US)
  Receive Date: 20190326
  Receipt Date: 20190326
  Transmission Date: 20190418
  Serious: Yes (Death)
  Sender: FDA-Public Use
  Company Number: US-KNIGHT THERAPEUTICS (USA) INC.-2064659

PATIENT
  Age: 69 Year
  Sex: Female

DRUGS (6)
  1. SULFADIAZINE. [Concomitant]
     Active Substance: SULFADIAZINE
  2. AZITHROMYCIN ANHYDROUS. [Concomitant]
     Active Substance: AZITHROMYCIN ANHYDROUS
  3. PENTAMIDINE [Concomitant]
     Active Substance: PENTAMIDINE
  4. FLUCONAZOLE. [Concomitant]
     Active Substance: FLUCONAZOLE
  5. IMPAVIDO [Suspect]
     Active Substance: MILTEFOSINE
  6. FLUCYTOSINE. [Concomitant]
     Active Substance: FLUCYTOSINE

REACTIONS (2)
  - Off label use [None]
  - Drug ineffective for unapproved indication [Fatal]
